FAERS Safety Report 5894754-5 (Version None)
Quarter: 2008Q3

REPORT INFORMATION
  Report Type: 
  Country: None (occurrence: None)
  Receive Date: 20080922
  Receipt Date: 20080910
  Transmission Date: 20090109
  Serious: Yes (Hospitalization, Other)
  Sender: FDA-Public Use
  Company Number: 2008AL010505

PATIENT
  Age: 69 Year
  Sex: Male

DRUGS (18)
  1. AMLODIPINE BESYLATE [Suspect]
     Indication: DRUG USE FOR UNKNOWN INDICATION
     Dosage: 5 MG; QD
  2. ACETAMINOPHEN AND CODEINE PHOSPHATE [Suspect]
     Indication: DRUG USE FOR UNKNOWN INDICATION
  3. SERETIDE [Concomitant]
  4. VENTOLIN [Concomitant]
  5. ACETYLSALICYLIC ACID SRT [Concomitant]
  6. COD-LIVER OIL [Concomitant]
  7. FRUSEMIDE [Concomitant]
  8. GLUCOSAMINE [Concomitant]
  9. GLYCOSIDE [Concomitant]
  10. NITROGLYCERIN [Concomitant]
  11. LIPASE+PROTEASE+AMYLASE [Concomitant]
  12. OMEPRAZOLE [Concomitant]
  13. ACETAMINOPHEN [Concomitant]
  14. MEPERIDINE HCL [Concomitant]
  15. QUININE SULPHATE [Concomitant]
  16. RAMIPRIL [Concomitant]
  17. SIMVASTATIN [Concomitant]
  18. WARFARIN SODIUM [Concomitant]

REACTIONS (5)
  - ENTEROCOLITIS [None]
  - INFLAMMATION [None]
  - INFLAMMATORY BOWEL DISEASE [None]
  - PANCREATIC DISORDER [None]
  - PNEUMONIA PNEUMOCOCCAL [None]
